FAERS Safety Report 14238927 (Version 1)
Quarter: 2017Q4

REPORT INFORMATION
  Report Type: Spontaneous
  Country: US (occurrence: US)
  Receive Date: 20171130
  Receipt Date: 20171130
  Transmission Date: 20180321
  Serious: No
  Sender: FDA-Public Use
  Company Number: US-SA-2017SA165774

PATIENT
  Age: 66 Year
  Sex: Male

DRUGS (20)
  1. SOLIQUA 100/33 [Suspect]
     Active Substance: INSULIN GLARGINE\LIXISENATIDE
     Indication: GLYCOSYLATED HAEMOGLOBIN
     Dosage: DOSE:30 UNIT(S)
     Route: 058
  2. SOLIQUA 100/33 [Suspect]
     Active Substance: INSULIN GLARGINE\LIXISENATIDE
     Indication: GLYCOSYLATED HAEMOGLOBIN
     Dosage: DOSE:22 UNIT(S)
     Route: 058
  3. SOLIQUA 100/33 [Suspect]
     Active Substance: INSULIN GLARGINE\LIXISENATIDE
     Indication: TYPE 2 DIABETES MELLITUS
     Dosage: DOSE:24 UNIT(S)
     Route: 058
  4. SOLOSTAR [Suspect]
     Active Substance: DEVICE
     Indication: GLYCOSYLATED HAEMOGLOBIN
     Dates: start: 20170817
  5. SOLOSTAR [Suspect]
     Active Substance: DEVICE
     Indication: GLYCOSYLATED HAEMOGLOBIN
  6. SOLOSTAR [Suspect]
     Active Substance: DEVICE
     Indication: GLYCOSYLATED HAEMOGLOBIN
  7. SOLOSTAR [Suspect]
     Active Substance: DEVICE
     Indication: TYPE 2 DIABETES MELLITUS
  8. SOLIQUA 100/33 [Suspect]
     Active Substance: INSULIN GLARGINE\LIXISENATIDE
     Indication: TYPE 2 DIABETES MELLITUS
     Dosage: DOSE:30 UNIT(S)
     Route: 058
  9. SOLOSTAR [Suspect]
     Active Substance: DEVICE
     Indication: TYPE 2 DIABETES MELLITUS
  10. SOLOSTAR [Suspect]
     Active Substance: DEVICE
     Indication: TYPE 2 DIABETES MELLITUS
  11. SOLOSTAR [Suspect]
     Active Substance: DEVICE
     Indication: GLYCOSYLATED HAEMOGLOBIN
  12. SOLOSTAR [Suspect]
     Active Substance: DEVICE
     Indication: TYPE 2 DIABETES MELLITUS
     Dates: start: 20170817
  13. SOLIQUA 100/33 [Suspect]
     Active Substance: INSULIN GLARGINE\LIXISENATIDE
     Indication: GLYCOSYLATED HAEMOGLOBIN
     Dosage: DOSE:20 UNIT(S)
     Route: 058
  14. SOLIQUA 100/33 [Suspect]
     Active Substance: INSULIN GLARGINE\LIXISENATIDE
     Indication: TYPE 2 DIABETES MELLITUS
     Route: 058
     Dates: start: 20170817
  15. SOLIQUA 100/33 [Suspect]
     Active Substance: INSULIN GLARGINE\LIXISENATIDE
     Indication: TYPE 2 DIABETES MELLITUS
     Dosage: DOSE:22 UNIT(S)
     Route: 058
  16. SOLIQUA 100/33 [Suspect]
     Active Substance: INSULIN GLARGINE\LIXISENATIDE
     Indication: GLYCOSYLATED HAEMOGLOBIN
     Dosage: DOSE:24 UNIT(S)
     Route: 058
  17. SOLOSTAR [Suspect]
     Active Substance: DEVICE
     Indication: GLYCOSYLATED HAEMOGLOBIN
  18. SOLIQUA 100/33 [Suspect]
     Active Substance: INSULIN GLARGINE\LIXISENATIDE
     Indication: GLYCOSYLATED HAEMOGLOBIN
     Route: 058
     Dates: start: 20170817
  19. SOLIQUA 100/33 [Suspect]
     Active Substance: INSULIN GLARGINE\LIXISENATIDE
     Indication: TYPE 2 DIABETES MELLITUS
     Dosage: DOSE:20 UNIT(S)
     Route: 058
  20. SOLOSTAR [Suspect]
     Active Substance: DEVICE
     Indication: TYPE 2 DIABETES MELLITUS

REACTIONS (2)
  - Blood glucose increased [Recovered/Resolved]
  - Nerve block [Unknown]
